FAERS Safety Report 9033877 (Version 1)
Quarter: 2013Q1

REPORT INFORMATION
  Report Type: Spontaneous
  Country: US (occurrence: US)
  Receive Date: 20130128
  Receipt Date: 20130128
  Transmission Date: 20140127
  Serious: Yes (Hospitalization, Other)
  Sender: FDA-Public Use
  Company Number: US-AMGEN-USASP2012069444

PATIENT
  Age: 58 Year
  Sex: Female

DRUGS (2)
  1. ENBREL [Suspect]
     Indication: PSORIASIS
     Dosage: 50 MG, 2 TIMES/WK
     Dates: start: 20120406
  2. ENBREL [Suspect]
     Indication: PSORIATIC ARTHROPATHY

REACTIONS (9)
  - Silent myocardial infarction [Recovered/Resolved]
  - Unresponsive to stimuli [Recovered/Resolved]
  - Heart valve stenosis [Unknown]
  - Pain [Recovered/Resolved]
  - Type 2 diabetes mellitus [Not Recovered/Not Resolved]
  - Convulsion [Recovered/Resolved]
  - Muscle twitching [Recovered/Resolved]
  - Enzyme level increased [Unknown]
  - Blood cholesterol increased [Not Recovered/Not Resolved]
